FAERS Safety Report 6974588-0 (Version None)
Quarter: 2010Q3

REPORT INFORMATION
  Report Type: 
  Country: None (occurrence: None)
  Receive Date: 20100909
  Receipt Date: 20080820
  Transmission Date: 20110219
  Serious: No
  Sender: FDA-Public Use
  Company Number: US-WYE-H05658608

PATIENT
  Age: 65 Year
  Sex: Male
  Weight: 89.44 kg

DRUGS (1)
  1. PROTONIX [Suspect]
     Indication: NAUSEA
     Route: 048
     Dates: start: 20080701

REACTIONS (5)
  - DECREASED APPETITE [None]
  - DRUG INEFFECTIVE [None]
  - DYSPEPSIA [None]
  - THROAT IRRITATION [None]
  - WEIGHT DECREASED [None]
